FAERS Safety Report 11682791 (Version 5)
Quarter: 2015Q4

REPORT INFORMATION
  Report Type: Report from Study
  Country: CH (occurrence: CH)
  Receive Date: 20151029
  Receipt Date: 20151219
  Transmission Date: 20160304
  Serious: Yes (Death, Other)
  Sender: FDA-Public Use
  Company Number: CH-ABBVIE-15P-151-1488979-00

PATIENT
  Age: 72 Year
  Sex: Female

DRUGS (10)
  1. TARDYFERON [Concomitant]
     Active Substance: FERROUS SULFATE\FOLIC ACID
     Indication: PRODUCT USED FOR UNKNOWN INDICATION
  2. PANTOPRAZOL [Concomitant]
     Active Substance: PANTOPRAZOLE SODIUM
     Indication: PRODUCT USED FOR UNKNOWN INDICATION
  3. DUODOPA [Suspect]
     Active Substance: CARBIDOPA\LEVODOPA
     Indication: PARKINSON^S DISEASE
     Dosage: 2 CASSETTES PER 24H, CONT DOSE DAY:6ML/H,NIGHT4ML/H
     Route: 050
     Dates: start: 20150811
  4. EXELON [Concomitant]
     Active Substance: RIVASTIGMINE TARTRATE
     Indication: PRODUCT USED FOR UNKNOWN INDICATION
  5. CLOPIN [Concomitant]
     Active Substance: CLOPIDOGREL BISULFATE
     Indication: PRODUCT USED FOR UNKNOWN INDICATION
  6. CIPRALEX [Concomitant]
     Active Substance: ESCITALOPRAM OXALATE
     Indication: PRODUCT USED FOR UNKNOWN INDICATION
  7. REMERON [Concomitant]
     Active Substance: MIRTAZAPINE
     Indication: PRODUCT USED FOR UNKNOWN INDICATION
  8. XARELTO [Concomitant]
     Active Substance: RIVAROXABAN
     Indication: PRODUCT USED FOR UNKNOWN INDICATION
  9. DAFALGAN [Concomitant]
     Active Substance: ACETAMINOPHEN
     Indication: PRODUCT USED FOR UNKNOWN INDICATION
  10. VITAMIN D3 [Concomitant]
     Active Substance: CHOLECALCIFEROL
     Indication: PRODUCT USED FOR UNKNOWN INDICATION
     Dosage: 4000 E/ML

REACTIONS (28)
  - Death [Fatal]
  - Haemoglobin decreased [Unknown]
  - Sleep disorder [Unknown]
  - Psychotic disorder [Unknown]
  - Cardiovascular disorder [Unknown]
  - Weight abnormal [Unknown]
  - Social problem [Unknown]
  - Fatigue [Unknown]
  - Muscle spasms [Unknown]
  - Fall [Unknown]
  - Disturbance in attention [Unknown]
  - Sexual dysfunction [Unknown]
  - Activities of daily living impaired [Unknown]
  - Depressed mood [Unknown]
  - Emotional distress [Unknown]
  - Parkinson^s disease [Not Recovered/Not Resolved]
  - Muscle rigidity [Unknown]
  - Cognitive disorder [Unknown]
  - On and off phenomenon [Unknown]
  - Dyskinesia [Unknown]
  - Tremor [Unknown]
  - Illusion [Unknown]
  - Hallucination [Unknown]
  - Drug effect incomplete [Unknown]
  - Memory impairment [Unknown]
  - Gait disturbance [Unknown]
  - Pain [Unknown]
  - Affective disorder [Unknown]

NARRATIVE: CASE EVENT DATE: 20151024
